FAERS Safety Report 7308832-7 (Version None)
Quarter: 2011Q1

REPORT INFORMATION
  Report Type: 
  Country: None (occurrence: None)
  Receive Date: 20110223
  Receipt Date: 20110221
  Transmission Date: 20110831
  Serious: Yes (Death, Hospitalization)
  Sender: FDA-Public Use
  Company Number: PHHO2009US10571

PATIENT
  Sex: Female

DRUGS (4)
  1. MORPHIN HCL [Concomitant]
  2. AFINITOR [Suspect]
     Indication: BREAST CANCER
     Dosage: 10 MG, QD
     Route: 048
     Dates: start: 20090811
  3. DECADRON [Concomitant]
  4. ATENOLOL [Concomitant]

REACTIONS (6)
  - MUSCULAR WEAKNESS [None]
  - SINUS TACHYCARDIA [None]
  - FALL [None]
  - SEPSIS [None]
  - ATRIAL FIBRILLATION [None]
  - FEBRILE NEUTROPENIA [None]
